FAERS Safety Report 25332516 (Version 1)
Quarter: 2025Q2

REPORT INFORMATION
  Report Type: Spontaneous
  Country: US (occurrence: US)
  Receive Date: 20250519
  Receipt Date: 20250519
  Transmission Date: 20250716
  Serious: No
  Sender: GALDERMA
  Company Number: US-GALDERMA-US2025007142

PATIENT

DRUGS (1)
  1. NEMLUVIO [Suspect]
     Active Substance: NEMOLIZUMAB-ILTO
     Indication: Neurodermatitis
     Route: 058
     Dates: start: 20241025, end: 20241025

REACTIONS (2)
  - Blister [Unknown]
  - Rash [Unknown]
